FAERS Safety Report 11379547 (Version 1)
Quarter: 2015Q3

REPORT INFORMATION
  Report Type: Spontaneous
  Country: US (occurrence: US)
  Receive Date: 20150814
  Receipt Date: 20150814
  Transmission Date: 20151125
  Serious: No
  Sender: FDA-Public Use
  Company Number: PHEH2015US015134

PATIENT
  Sex: Female

DRUGS (1)
  1. FOCALIN [Suspect]
     Active Substance: DEXMETHYLPHENIDATE HYDROCHLORIDE
     Indication: CHRONIC FATIGUE SYNDROME
     Dosage: 2.5 MG, UNK
     Route: 065
     Dates: end: 20150801

REACTIONS (7)
  - Balance disorder [Unknown]
  - Off label use [Unknown]
  - Glaucoma [Unknown]
  - Somnolence [Unknown]
  - Stress [Unknown]
  - Joint stiffness [Unknown]
  - Asthenia [Unknown]
